FAERS Safety Report 7226526-3 (Version None)
Quarter: 2011Q1

REPORT INFORMATION
  Report Type: 
  Country: None (occurrence: None)
  Receive Date: 20110114
  Receipt Date: 20101231
  Transmission Date: 20110831
  Serious: Yes (Hospitalization, Other)
  Sender: FDA-Public Use
  Company Number: AU-RANBAXY-2010RR-40947

PATIENT
  Age: 26 Year
  Sex: Male

DRUGS (13)
  1. TACROLIMUS [Suspect]
  2. VORICONAZOLE [Suspect]
  3. VALGANCICLOVIR HCL [Concomitant]
     Indication: ANTIFUNGAL PROPHYLAXIS
  4. METHYLPREDNISOLONE ACETATE [Concomitant]
  5. FLUCONAZOLE [Suspect]
     Indication: ORGANISING PNEUMONIA
  6. POSACONAZOLE [Concomitant]
  7. AMPHOTERICIN B [Concomitant]
     Indication: ANTIFUNGAL PROPHYLAXIS
  8. CYCLOSPORINE [Suspect]
     Indication: IMMUNOSUPPRESSION
  9. MYCOPHENOLATE MOFETIL [Suspect]
     Indication: IMMUNOSUPPRESSION
     Dosage: 1.5 G, BID
  10. CASPOFUNGIN [Concomitant]
     Indication: OSTEOMYELITIS FUNGAL
  11. DEXAMETHASONE [Suspect]
     Indication: IMMUNOSUPPRESSION
     Dosage: 1.5 MG, UNK
  12. SIMULECT [Suspect]
     Indication: IMMUNOSUPPRESSION
  13. COTRIM [Concomitant]
     Indication: ANTIFUNGAL PROPHYLAXIS
     Dosage: UNK

REACTIONS (8)
  - ORGANISING PNEUMONIA [None]
  - LIVER INJURY [None]
  - POSTERIOR REVERSIBLE ENCEPHALOPATHY SYNDROME [None]
  - ARTHRITIS BACTERIAL [None]
  - OSTEOMYELITIS FUNGAL [None]
  - SWELLING [None]
  - PAIN [None]
  - HEAT ILLNESS [None]
